FAERS Safety Report 19031827 (Version 1)
Quarter: 2021Q1

REPORT INFORMATION
  Report Type: Spontaneous
  Country: GB (occurrence: GB)
  Receive Date: 20210319
  Receipt Date: 20210319
  Transmission Date: 20210420
  Serious: Yes (Other)
  Sender: FDA-Public Use
  Company Number: GB-PFIZER INC-2021273732

PATIENT
  Age: 55 Year
  Sex: Female

DRUGS (1)
  1. KETAMINE HCL [Suspect]
     Active Substance: KETAMINE HYDROCHLORIDE
     Dosage: UNK

REACTIONS (6)
  - Epilepsy [Unknown]
  - Near death experience [Unknown]
  - Protrusion tongue [Unknown]
  - Anaphylactic shock [Unknown]
  - Dyspnoea [Unknown]
  - Dyskinesia [Unknown]
